FAERS Safety Report 4367382-0 (Version None)
Quarter: 2004Q2

REPORT INFORMATION
  Report Type: 
  Country: None (occurrence: None)
  Receive Date: 20040521
  Receipt Date: 20031031
  Transmission Date: 20050107
  Serious: Yes (Hospitalization)
  Sender: FDA-Public Use
  Company Number: PHEH2003US10045

PATIENT
  Age: 80 Year
  Sex: Male

DRUGS (5)
  1. TEGRETOL-XR [Suspect]
     Indication: CONVULSION
     Dosage: 900 MG, QD, ORAL
     Route: 048
  2. LAMICTAL [Concomitant]
  3. ZONEGRAN [Concomitant]
  4. ZESTRIL [Concomitant]
  5. LASIX [Concomitant]

REACTIONS (4)
  - CONVULSION [None]
  - NAUSEA [None]
  - SOMNOLENCE [None]
  - VOMITING [None]
